FAERS Safety Report 10452263 (Version 1)
Quarter: 2014Q3

REPORT INFORMATION
  Report Type: Spontaneous
  Country: US (occurrence: None)
  Receive Date: 20140912
  Receipt Date: 20140912
  Transmission Date: 20150326
  Serious: Yes (Other)
  Sender: FDA-Public Use
  Company Number: None

PATIENT
  Age: 4 Year
  Sex: Female

DRUGS (1)
  1. CAVITYSHEILD WITH XYLITOL 0.25 ML 5% SODIUM FLUORIDE [Suspect]
     Active Substance: SODIUM FLUORIDE
     Dosage: 0.25 ML, 1 TIME EVERY 6 MO, TOPICAL APPLICATION ON TEETH
     Route: 061
     Dates: start: 20130614, end: 20131205

REACTIONS (4)
  - Nasopharyngitis [None]
  - Dysphagia [None]
  - Influenza [None]
  - Tongue blistering [None]

NARRATIVE: CASE EVENT DATE: 20130614
